FAERS Safety Report 7212363-2 (Version None)
Quarter: 2011Q1

REPORT INFORMATION
  Report Type: 
  Country: None (occurrence: None)
  Receive Date: 20110106
  Receipt Date: 20110103
  Transmission Date: 20110831
  Serious: Yes (Other)
  Sender: FDA-Public Use
  Company Number: FR-BRISTOL-MYERS SQUIBB COMPANY-15440951

PATIENT
  Age: 30 Year
  Sex: Female
  Weight: 63 kg

DRUGS (3)
  1. NORVIR [Suspect]
     Indication: HIV INFECTION
     Route: 048
     Dates: start: 20100501
  2. REYATAZ [Suspect]
     Indication: HIV INFECTION
     Route: 048
     Dates: start: 20100501
  3. KIVEXA [Suspect]
     Indication: HIV INFECTION
     Dosage: 1DF: 1 TAB
     Route: 048
     Dates: start: 20100501

REACTIONS (2)
  - PREGNANCY [None]
  - ABORTION SPONTANEOUS [None]
